FAERS Safety Report 5919146-1 (Version None)
Quarter: 2008Q4

REPORT INFORMATION
  Report Type: 
  Country: None (occurrence: None)
  Receive Date: 20081014
  Receipt Date: 20081014
  Transmission Date: 20090506
  Serious: Yes (Hospitalization, Other)
  Sender: FDA-Public Use
  Company Number: None

PATIENT
  Sex: Female
  Weight: 52.1637 kg

DRUGS (2)
  1. HUMIRA [Suspect]
     Indication: CROHN'S DISEASE
     Dosage: 40 MG ONCE WEEKLY SQ
     Route: 058
  2. IMURAN [Suspect]
     Dosage: 125 MG DAILY PO MANY YEARS
     Route: 048

REACTIONS (7)
  - ANAEMIA [None]
  - CYTOMEGALOVIRUS VIRAEMIA [None]
  - DISSEMINATED CYTOMEGALOVIRAL INFECTION [None]
  - LEUKOPENIA [None]
  - LIVER FUNCTION TEST ABNORMAL [None]
  - LYMPHOCYTE MORPHOLOGY ABNORMAL [None]
  - LYMPHOCYTOSIS [None]
